FAERS Safety Report 4796224-4 (Version None)
Quarter: 2005Q4

REPORT INFORMATION
  Report Type: 
  Country: None (occurrence: None)
  Receive Date: 20051013
  Receipt Date: 20050928
  Transmission Date: 20060501
  Serious: Yes (Hospitalization)
  Sender: FDA-Public Use
  Company Number: CA-BOEHRINGER INGELHEIM PHARMACEUTICALS, INC.-2005-CN-00953CN

PATIENT
  Sex: Male
  Weight: 100 kg

DRUGS (5)
  1. TIPRANAVIR + RITONAVIR CO-ADMIN [Suspect]
     Indication: HIV INFECTION
     Dosage: 1000MG TPV / 400MG RTV
     Route: 048
     Dates: start: 20041101
  2. D4T [Concomitant]
     Indication: HIV INFECTION
     Route: 048
     Dates: start: 20041101
  3. 3TC [Concomitant]
     Indication: HIV INFECTION
     Route: 048
     Dates: start: 20041101
  4. TENOFOVIR [Concomitant]
     Indication: HIV INFECTION
     Route: 048
     Dates: start: 20041101
  5. FUZEON [Concomitant]
     Indication: HIV INFECTION
     Route: 058
     Dates: start: 20041101

REACTIONS (1)
  - MENINGITIS VIRAL [None]
